FAERS Safety Report 6199248-8 (Version None)
Quarter: 2009Q2

REPORT INFORMATION
  Report Type: 
  Country: None (occurrence: None)
  Receive Date: 20090522
  Receipt Date: 20090514
  Transmission Date: 20091009
  Serious: Yes (Death, Hospitalization, Other)
  Sender: FDA-Public Use
  Company Number: IT-ELI_LILLY_AND_COMPANY-IT200811004413

PATIENT
  Sex: Male
  Weight: 80 kg

DRUGS (14)
  1. ZYPREXA [Suspect]
     Dosage: 2.5 MG, UNK
     Dates: start: 20040101
  2. ZYPREXA [Suspect]
     Dosage: 2.5 MG, DAILY (1/D)
     Dates: start: 20050203, end: 20050101
  3. ALPRAZOLAM [Concomitant]
     Dosage: 2.5 D/F, DAILY (1/D)
     Dates: start: 20050107
  4. FLUOXETINE HYDROCHLORIDE [Concomitant]
     Dosage: 2 D/F, DAILY (1/D)
  5. FLUNOX [Concomitant]
     Dosage: 1 D/F, DAILY (1/D)
     Dates: start: 20041209
  6. LANTANON [Concomitant]
     Dosage: 10 D/F, UNK
     Dates: start: 20041209, end: 20041223
  7. CITALOPRAM HYDROBROMIDE [Concomitant]
     Dates: start: 20041214
  8. ZOLOFT [Concomitant]
     Dates: start: 20050606
  9. SOLIAN [Concomitant]
     Dates: start: 20050606
  10. RIVOTRIL [Concomitant]
     Dates: start: 20050606
  11. MIRAPEX [Concomitant]
  12. LEXOTAN [Concomitant]
  13. PROCAPTAN [Concomitant]
  14. LAMICTAL [Concomitant]

REACTIONS (32)
  - ACTIVITIES OF DAILY LIVING IMPAIRED [None]
  - ASTHENIA [None]
  - BEDRIDDEN [None]
  - BIPOLAR DISORDER [None]
  - BLINDNESS [None]
  - BLOOD CREATINE PHOSPHOKINASE INCREASED [None]
  - BRONCHITIS [None]
  - CEREBROVASCULAR DISORDER [None]
  - CHRONIC OBSTRUCTIVE PULMONARY DISEASE [None]
  - COGNITIVE DISORDER [None]
  - COMPLETED SUICIDE [None]
  - DEAFNESS [None]
  - DEPRESSION [None]
  - DYSPNOEA [None]
  - EXTRAPYRAMIDAL DISORDER [None]
  - GASTRITIS [None]
  - HERNIA [None]
  - HOSPITALISATION [None]
  - HYPERTENSION [None]
  - HYPERTRIGLYCERIDAEMIA [None]
  - MAJOR DEPRESSION [None]
  - MALAISE [None]
  - PAIN [None]
  - PANIC DISORDER [None]
  - PARKINSON'S DISEASE [None]
  - PHOBIA [None]
  - PNEUMONIA [None]
  - PSYCHOMOTOR HYPERACTIVITY [None]
  - SPINAL OSTEOARTHRITIS [None]
  - SUICIDAL IDEATION [None]
  - ULTRASOUND KIDNEY ABNORMAL [None]
  - WEIGHT INCREASED [None]
